FAERS Safety Report 6936118-9 (Version None)
Quarter: 2010Q3

REPORT INFORMATION
  Report Type: 
  Country: None (occurrence: None)
  Receive Date: 20100823
  Receipt Date: 20100814
  Transmission Date: 20110219
  Serious: Yes (Congenital Anomaly, Other)
  Sender: FDA-Public Use
  Company Number: US-ABBOTT-10P-163-0658390-00

PATIENT
  Sex: Male

DRUGS (8)
  1. RITONAVIR [Suspect]
     Indication: DRUG EXPOSURE DURING PREGNANCY
     Route: 064
     Dates: start: 20090909, end: 20090916
  2. RITONAVIR [Suspect]
     Route: 064
     Dates: start: 20090917, end: 20091007
  3. RITONAVIR [Suspect]
     Route: 064
     Dates: start: 20091008
  4. DARUNAVIR [Concomitant]
     Indication: DRUG EXPOSURE DURING PREGNANCY
     Route: 064
     Dates: start: 20090909, end: 20090916
  5. DARUNAVIR [Concomitant]
     Route: 064
     Dates: start: 20090917, end: 20091007
  6. DARUNAVIR [Concomitant]
     Route: 064
     Dates: start: 20091008, end: 20100324
  7. COMBIVIR [Concomitant]
     Indication: DRUG EXPOSURE DURING PREGNANCY
     Route: 064
     Dates: start: 20090909
  8. ZIDOVUDINE [Concomitant]
     Indication: DRUG EXPOSURE DURING PREGNANCY
     Route: 064
     Dates: start: 20100104, end: 20100105

REACTIONS (2)
  - CARDIAC MURMUR [None]
  - HYPERBILIRUBINAEMIA NEONATAL [None]
